FAERS Safety Report 13720807 (Version 1)
Quarter: 2017Q3

REPORT INFORMATION
  Report Type: Spontaneous
  Country: US (occurrence: US)
  Receive Date: 20170705
  Receipt Date: 20170705
  Transmission Date: 20171127
  Serious: Yes (Hospitalization)
  Sender: FDA-Public Use
  Company Number: None

PATIENT
  Age: 70 Year
  Sex: Male
  Weight: 92.25 kg

DRUGS (1)
  1. TAMSULOSIN HCL [Suspect]
     Active Substance: TAMSULOSIN
     Indication: URETEROLITHIASIS
     Dosage: ?          OTHER DOSE:MG;?
     Route: 048
     Dates: start: 20170629, end: 20170630

REACTIONS (3)
  - Therapy non-responder [None]
  - Migraine [None]
  - Nausea [None]

NARRATIVE: CASE EVENT DATE: 20170701
